FAERS Safety Report 7289459-2 (Version None)
Quarter: 2011Q1

REPORT INFORMATION
  Report Type: 
  Country: None (occurrence: None)
  Receive Date: 20110211
  Receipt Date: 20110202
  Transmission Date: 20110831
  Serious: Yes (Other)
  Sender: FDA-Public Use
  Company Number: US-US-EMD SERONO, INC.-7028587

PATIENT
  Sex: Male
  Weight: 82 kg

DRUGS (2)
  1. BENADRYL [Concomitant]
  2. REBIF [Suspect]
     Indication: MULTIPLE SCLEROSIS
     Route: 058
     Dates: start: 20090828

REACTIONS (7)
  - INFLUENZA LIKE ILLNESS [None]
  - WEIGHT INCREASED [None]
  - INJECTION SITE RASH [None]
  - INJECTION SITE MASS [None]
  - SCIATICA [None]
  - PNEUMONIA [None]
  - HEPATIC STEATOSIS [None]
